FAERS Safety Report 10498815 (Version 2)
Quarter: 2014Q4

REPORT INFORMATION
  Report Type: Spontaneous
  Country: US (occurrence: US)
  Receive Date: 20141006
  Receipt Date: 20141124
  Transmission Date: 20150528
  Serious: No
  Sender: FDA-Public Use
  Company Number: US-PFIZER INC-2014270026

PATIENT
  Age: 79 Year
  Sex: Female

DRUGS (1)
  1. SUTENT [Suspect]
     Active Substance: SUNITINIB MALATE
     Indication: RENAL CANCER
     Dosage: 50 MG, 1X/DAY (ONCE EVERY MORNING/EVERY AM, 28 DAYS ON - 7 DAYS OFF)
     Route: 048
     Dates: start: 20140816

REACTIONS (2)
  - Stomatitis [Unknown]
  - Pruritus [Unknown]

NARRATIVE: CASE EVENT DATE: 20140929
